FAERS Safety Report 5098945-5 (Version None)
Quarter: 2006Q3

REPORT INFORMATION
  Report Type: 
  Country: None (occurrence: None)
  Receive Date: 20060907
  Receipt Date: 20060831
  Transmission Date: 20061208
  Serious: Yes (Hospitalization)
  Sender: FDA-Public Use
  Company Number: CH-AVENTIS-200619077GDDC

PATIENT
  Age: 84 Year
  Sex: Male

DRUGS (7)
  1. DAONIL [Suspect]
     Indication: DIABETES MELLITUS
     Route: 048
     Dates: end: 20060311
  2. SINTROM [Concomitant]
     Route: 048
  3. TEMESTA [Concomitant]
     Route: 048
  4. DUPHALAC [Concomitant]
     Route: 048
  5. CORDARONE [Concomitant]
     Route: 048
  6. PANTOZOL [Concomitant]
     Route: 048
  7. PRADIF [Concomitant]
     Route: 048

REACTIONS (3)
  - BLOOD PRESSURE INCREASED [None]
  - FALL [None]
  - HYPOGLYCAEMIA [None]
